FAERS Safety Report 7157747-6 (Version None)
Quarter: 2010Q4

REPORT INFORMATION
  Report Type: 
  Country: None (occurrence: None)
  Receive Date: 20101214
  Receipt Date: 20100203
  Transmission Date: 20110411
  Serious: No
  Sender: FDA-Public Use
  Company Number: US-ASTRAZENECA-2010SE04881

PATIENT
  Sex: Male

DRUGS (1)
  1. CRESTOR [Suspect]
     Route: 048

REACTIONS (5)
  - CHEST PAIN [None]
  - GAIT DISTURBANCE [None]
  - JOINT CREPITATION [None]
  - MUSCULOSKELETAL PAIN [None]
  - MYALGIA [None]
